FAERS Safety Report 6643946-6 (Version None)
Quarter: 2010Q1

REPORT INFORMATION
  Report Type: 
  Country: None (occurrence: None)
  Receive Date: 20100317
  Receipt Date: 20100303
  Transmission Date: 20100710
  Serious: Yes (Other)
  Sender: FDA-Public Use
  Company Number: THQ2010A00632

PATIENT
  Age: 74 Year
  Sex: Female

DRUGS (1)
  1. PIOGLITAZONE HCL [Suspect]
     Indication: BLOOD GLUCOSE
     Dosage: 30 MG (30 MG, 1 IN 1 D) PER ORAL
     Route: 048

REACTIONS (1)
  - HEPATITIS C [None]
